FAERS Safety Report 19741275 (Version 1)
Quarter: 2021Q3

REPORT INFORMATION
  Report Type: Spontaneous
  Country: BR (occurrence: BR)
  Receive Date: 20210824
  Receipt Date: 20210824
  Transmission Date: 20211014
  Serious: Yes (Hospitalization, Other)
  Sender: FDA-Public Use
  Company Number: BR-ABBVIE-21P-020-3959451-00

PATIENT
  Sex: Female

DRUGS (2)
  1. DEPAKOTE ER [Suspect]
     Active Substance: DIVALPROEX SODIUM
     Indication: MEMORY IMPAIRMENT
     Dosage: USED FOR AROUND 51 DAYS.
     Route: 065
     Dates: end: 202106
  2. DEPAKOTE ER [Suspect]
     Active Substance: DIVALPROEX SODIUM
     Indication: EPILEPSY

REACTIONS (13)
  - Petit mal epilepsy [Unknown]
  - Somnolence [Unknown]
  - Chills [Unknown]
  - Contraindicated product administered [Unknown]
  - Head discomfort [Unknown]
  - Diarrhoea [Not Recovered/Not Resolved]
  - Asthenia [Not Recovered/Not Resolved]
  - Amnesia [Not Recovered/Not Resolved]
  - Vomiting [Unknown]
  - Hallucination [Recovered/Resolved]
  - Drug-induced liver injury [Recovered/Resolved]
  - Fatigue [Unknown]
  - Crying [Unknown]

NARRATIVE: CASE EVENT DATE: 20210626
